FAERS Safety Report 5279131-2 (Version None)
Quarter: 2007Q1

REPORT INFORMATION
  Report Type: 
  Country: None (occurrence: None)
  Receive Date: 20061208
  Receipt Date: 20050719
  Transmission Date: 20070707
  Serious: No
  Sender: FDA-Public Use
  Company Number: 2005UW10804

PATIENT
  Age: 75 Year
  Sex: Female

DRUGS (3)
  1. CRESTOR [Suspect]
     Dosage: 20 MG QD PO
     Route: 048
  2. ZETIA [Concomitant]
  3. MULTIPLE MEDICATIONS [Concomitant]

REACTIONS (1)
  - THROMBOCYTOPENIA [None]
